FAERS Safety Report 10384794 (Version 2)
Quarter: 2014Q3

REPORT INFORMATION
  Report Type: Spontaneous
  Country: US (occurrence: US)
  Receive Date: 20140814
  Receipt Date: 20140821
  Transmission Date: 20150326
  Serious: No
  Sender: FDA-Public Use
  Company Number: US-BAYER-2014-121149

PATIENT
  Age: 71 Year
  Sex: Female
  Weight: 69.84 kg

DRUGS (3)
  1. ALEVE [Suspect]
     Active Substance: NAPROXEN SODIUM
     Indication: ARTHRALGIA
  2. ALEVE [Suspect]
     Active Substance: NAPROXEN SODIUM
     Indication: BACK PAIN
     Dosage: 1 DF, BID
     Route: 048
  3. ECOTRIN [Concomitant]
     Active Substance: ASPIRIN

REACTIONS (2)
  - Wrong technique in drug usage process [None]
  - Drug ineffective [None]
